FAERS Safety Report 23681590 (Version 5)
Quarter: 2025Q2

REPORT INFORMATION
  Report Type: Report from Study
  Country: GB (occurrence: GB)
  Receive Date: 20240328
  Receipt Date: 20250528
  Transmission Date: 20250716
  Serious: Yes (Other)
  Sender: TAKEDA
  Company Number: GB-TAKEDA-2022TUS061478

PATIENT
  Sex: Female

DRUGS (2)
  1. VEDOLIZUMAB [Suspect]
     Active Substance: VEDOLIZUMAB
     Indication: Crohn^s disease
  2. VEDOLIZUMAB [Suspect]
     Active Substance: VEDOLIZUMAB

REACTIONS (14)
  - Bell^s palsy [Unknown]
  - Crohn^s disease [Unknown]
  - Hypoaesthesia [Unknown]
  - Candida infection [Unknown]
  - Stoma complication [Unknown]
  - Injection site swelling [Unknown]
  - Injection site bruising [Unknown]
  - Injection site mass [Unknown]
  - Incorrect dose administered [Unknown]
  - Burn infection [Unknown]
  - Groin infection [Unknown]
  - Stress [Unknown]
  - Visual impairment [Unknown]
  - Oropharyngeal pain [Unknown]
